FAERS Safety Report 5499919-2 (Version None)
Quarter: 2007Q4

REPORT INFORMATION
  Report Type: 
  Country: None (occurrence: None)
  Receive Date: 20071026
  Receipt Date: 20071016
  Transmission Date: 20080405
  Serious: Yes (Other)
  Sender: FDA-Public Use
  Company Number: FR-PFIZER INC-2007087603

PATIENT
  Sex: Male

DRUGS (2)
  1. LYRICA [Suspect]
     Indication: POLYNEUROPATHY
  2. METFORMIN [Interacting]
     Indication: HYPERGLYCAEMIA

REACTIONS (4)
  - DRUG INTERACTION [None]
  - HYPERGLYCAEMIA [None]
  - OEDEMA [None]
  - RENAL FAILURE [None]
